FAERS Safety Report 5619509-8 (Version None)
Quarter: 2008Q1

REPORT INFORMATION
  Report Type: 
  Country: None (occurrence: None)
  Receive Date: 20080108
  Receipt Date: 20071005
  Transmission Date: 20080703
  Serious: Yes (Other)
  Sender: FDA-Public Use
  Company Number: A03200705891

PATIENT
  Sex: Female

DRUGS (2)
  1. DEMEROL [Suspect]
  2. COMPAZINE [Suspect]

REACTIONS (1)
  - RESPIRATORY ARREST [None]
